FAERS Safety Report 4612022-6 (Version None)
Quarter: 2005Q2

REPORT INFORMATION
  Report Type: 
  Country: None (occurrence: None)
  Receive Date: 20050308
  Receipt Date: 20041130
  Transmission Date: 20051028
  Serious: Yes (Other)
  Sender: FDA-Public Use
  Company Number: 2004UW24524

PATIENT

DRUGS (2)
  1. CRESTOR [Suspect]
     Dosage: 40 MG QD PO
     Route: 048
  2. ZETIA [Concomitant]

REACTIONS (1)
  - LOW DENSITY LIPOPROTEIN INCREASED [None]
